FAERS Safety Report 4514963-7 (Version None)
Quarter: 2004Q4

REPORT INFORMATION
  Report Type: 
  Country: None (occurrence: None)
  Receive Date: 20041129
  Receipt Date: 20041129
  Transmission Date: 20050328
  Serious: No
  Sender: FDA-Public Use
  Company Number: None

PATIENT
  Sex: Male
  Weight: 100.2449 kg

DRUGS (7)
  1. FORMOTEROL    12MCG [Suspect]
     Indication: ASTHMA
     Dosage: ONE CAPSULE   BID  RESPIRATOR
     Route: 055
     Dates: start: 20040726, end: 20040801
  2. ALBUTEROL [Concomitant]
  3. CARVEDILOL [Concomitant]
  4. FLUNISOLIDE [Concomitant]
  5. FLUTICASONE PROP [Concomitant]
  6. LOVASTATIN [Concomitant]
  7. OMEPRAZOLE [Concomitant]

REACTIONS (4)
  - DIZZINESS [None]
  - NAUSEA [None]
  - PHARMACEUTICAL PRODUCT COMPLAINT [None]
  - VOMITING [None]
